FAERS Safety Report 9357925 (Version 1)
Quarter: 2013Q2

REPORT INFORMATION
  Report Type: Report from Study
  Country: DE (occurrence: DE)
  Receive Date: 20130620
  Receipt Date: 20130620
  Transmission Date: 20140414
  Serious: Yes (Other)
  Sender: FDA-Public Use
  Company Number: DE-US-EMD SERONO, INC.-7160682

PATIENT
  Age: 28 Year
  Sex: Female

DRUGS (5)
  1. REBIF [Suspect]
     Indication: RELAPSING-REMITTING MULTIPLE SCLEROSIS
     Route: 058
     Dates: start: 20111027, end: 20120816
  2. VIGIL [Concomitant]
     Indication: FATIGUE
     Route: 048
     Dates: start: 20120605, end: 20120724
  3. AKTREN SPEZIAL [Concomitant]
     Indication: PROPHYLAXIS
     Route: 048
     Dates: start: 20111027, end: 20120816
  4. DEKRISTOL [Concomitant]
     Indication: VITAMIN D DEFICIENCY
     Route: 048
     Dates: start: 20120712, end: 20120725
  5. DEKRISTOL [Concomitant]
     Route: 048
     Dates: start: 20120726

REACTIONS (4)
  - Caesarean section [Recovered/Resolved]
  - Live birth [Recovered/Resolved]
  - Pregnancy [Recovered/Resolved]
  - Maternal exposure during pregnancy [Recovered/Resolved]
